FAERS Safety Report 24230076 (Version 1)
Quarter: 2024Q3

REPORT INFORMATION
  Report Type: Report from Study
  Country: US (occurrence: US)
  Receive Date: 20240820
  Receipt Date: 20240820
  Transmission Date: 20241016
  Serious: Yes (Hospitalization)
  Sender: ROCHE
  Company Number: US-ROCHE-3472615

PATIENT
  Sex: Female

DRUGS (10)
  1. CELLCEPT [Suspect]
     Active Substance: MYCOPHENOLATE MOFETIL
     Indication: Encephalitis
     Route: 048
     Dates: start: 20220328
  2. CELLCEPT [Suspect]
     Active Substance: MYCOPHENOLATE MOFETIL
     Indication: Encephalomyelitis
  3. CELLCEPT [Suspect]
     Active Substance: MYCOPHENOLATE MOFETIL
     Indication: Myelitis
  4. CELLCEPT [Suspect]
     Active Substance: MYCOPHENOLATE MOFETIL
     Indication: Demyelination
  5. AZITHROMYCIN [Concomitant]
     Active Substance: AZITHROMYCIN
     Indication: Product used for unknown indication
     Route: 048
     Dates: start: 20231129, end: 20240508
  6. ZYRTEC [Concomitant]
     Active Substance: CETIRIZINE HYDROCHLORIDE
  7. MELATONIN [Concomitant]
     Active Substance: MELATONIN
     Dates: start: 20200918
  8. VITAMIN D3 [Concomitant]
     Active Substance: CHOLECALCIFEROL
  9. CLEOCIN T [Concomitant]
     Active Substance: CLINDAMYCIN PHOSPHATE
     Dates: start: 20210722
  10. MYCOSTATIN [Concomitant]
     Active Substance: NYSTATIN
     Dates: start: 20210414

REACTIONS (9)
  - Product complaint [Unknown]
  - Off label use [Unknown]
  - Tic [Unknown]
  - Upper respiratory tract infection [Unknown]
  - Stoma site rash [Unknown]
  - Rash [Unknown]
  - Bradykinesia [Unknown]
  - Oropharyngeal pain [Unknown]
  - Central nervous system lesion [Unknown]
